FAERS Safety Report 16009136 (Version 1)
Quarter: 2019Q1

REPORT INFORMATION
  Report Type: Spontaneous
  Country: CN (occurrence: CN)
  Receive Date: 20190226
  Receipt Date: 20190226
  Transmission Date: 20190418
  Serious: Yes (Life-Threatening)
  Sender: FDA-Public Use
  Company Number: CN-TAKEDA-2019TUS007511

PATIENT
  Age: 53 Year
  Sex: Male

DRUGS (5)
  1. DEXAMETHASONE. [Suspect]
     Active Substance: DEXAMETHASONE
     Indication: PLASMA CELL MYELOMA
     Dosage: 20 MILLIGRAM, QD
     Route: 041
     Dates: start: 20180901, end: 20180905
  2. VORICONAZOLE. [Concomitant]
     Active Substance: VORICONAZOLE
     Indication: FUNGAL INFECTION
     Dosage: 200 MILLIGRAM, BID
     Route: 048
     Dates: start: 20180831, end: 20180908
  3. VELCADE [Suspect]
     Active Substance: BORTEZOMIB
     Indication: PLASMA CELL MYELOMA
     Dosage: 2.4 MILLIGRAM
     Route: 058
     Dates: start: 20180901, end: 201809
  4. ADRIAMYCIN [Suspect]
     Active Substance: DOXORUBICIN HYDROCHLORIDE
     Indication: PLASMA CELL MYELOMA
     Dosage: 60 MILLIGRAM
     Route: 065
  5. VELCADE [Suspect]
     Active Substance: BORTEZOMIB
     Dosage: UNK
     Route: 058

REACTIONS (6)
  - Inappropriate antidiuretic hormone secretion [Unknown]
  - Diarrhoea [Recovering/Resolving]
  - Peripheral nerve injury [Unknown]
  - Product use issue [Unknown]
  - Nervous system disorder [Unknown]
  - Off label use [Unknown]

NARRATIVE: CASE EVENT DATE: 20180901
